FAERS Safety Report 5107010-X (Version None)
Quarter: 2006Q3

REPORT INFORMATION
  Report Type: 
  Country: None (occurrence: None)
  Receive Date: 20060913
  Receipt Date: 20060905
  Transmission Date: 20061208
  Serious: Yes (Life-Threatening)
  Sender: FDA-Public Use
  Company Number: 229116

PATIENT
  Age: 69 Year
  Sex: Male

DRUGS (6)
  1. GRTPA (ALTEPLASE) PWDR + SOLVENT, INFUSION SOLN [Suspect]
     Indication: CEREBRAL ARTERY EMBOLISM
     Dosage: 30 MG, SINGLE, INTRAVENOUS
     Route: 042
     Dates: start: 20060507, end: 20060507
  2. RADICUT (EDARAVONE) [Concomitant]
  3. GLYCEOL (GLYCERIN) [Concomitant]
  4. NICARDIPINE HYDROCHLORIDE [Concomitant]
  5. OMEPRAZOLE [Concomitant]
  6. HESPANDER (HETASTARCH) [Concomitant]

REACTIONS (2)
  - BLOOD PRESSURE SYSTOLIC INCREASED [None]
  - PULMONARY OEDEMA [None]
